APPROVED DRUG PRODUCT: NULYTELY
Active Ingredient: POLYETHYLENE GLYCOL 3350; POTASSIUM CHLORIDE; SODIUM BICARBONATE; SODIUM CHLORIDE
Strength: 420GM/BOT;1.48GM/BOT;5.72GM/BOT;11.2GM/BOT
Dosage Form/Route: FOR SOLUTION;ORAL
Application: N019797 | Product #001 | TE Code: AA
Applicant: AZURITY PHARMACEUTICALS INC
Approved: Apr 22, 1991 | RLD: Yes | RS: Yes | Type: RX